FAERS Safety Report 16701653 (Version 1)
Quarter: 2019Q3

REPORT INFORMATION
  Report Type: Spontaneous
  Country: US (occurrence: US)
  Receive Date: 20190813
  Receipt Date: 20190813
  Transmission Date: 20191004
  Serious: Yes (Other)
  Sender: FDA-Public Use
  Company Number: None

PATIENT
  Age: 65 Year
  Sex: Male
  Weight: 88.9 kg

DRUGS (1)
  1. LUMASON [Suspect]
     Active Substance: SULFUR HEXAFLUORIDE
     Indication: CONTRAST MEDIA DEPOSITION
     Route: 042
     Dates: start: 20190812, end: 20190812

REACTIONS (3)
  - Pruritus [None]
  - Renal disorder [None]
  - Headache [None]

NARRATIVE: CASE EVENT DATE: 20190812
